FAERS Safety Report 6666710-0 (Version None)
Quarter: 2010Q2

REPORT INFORMATION
  Report Type: 
  Country: None (occurrence: None)
  Receive Date: 20100402
  Receipt Date: 20100402
  Transmission Date: 20101027
  Serious: Yes (Other)
  Sender: FDA-Public Use
  Company Number: None

PATIENT
  Sex: Female
  Weight: 60.782 kg

DRUGS (2)
  1. MICRONOR [Suspect]
     Indication: CONTRACEPTION
     Dates: start: 20080505
  2. ORTHO TRI-CYCLEN LO [Suspect]
     Indication: CONTRACEPTION
     Dates: start: 20080805

REACTIONS (1)
  - AMENORRHOEA [None]
